FAERS Safety Report 9477293 (Version 1)
Quarter: 2013Q3

REPORT INFORMATION
  Report Type: Spontaneous
  Country: US (occurrence: US)
  Receive Date: 20130826
  Receipt Date: 20130826
  Transmission Date: 20140515
  Serious: Yes (Hospitalization)
  Sender: FDA-Public Use
  Company Number: US-GILEAD-2013-0081807

PATIENT
  Age: 72 Year
  Sex: Female

DRUGS (5)
  1. RANOLAZINE [Suspect]
     Indication: ANGINA PECTORIS
     Dosage: 1000 MG, QD
  2. ATORVASTATIN [Concomitant]
  3. CLOPIDOGREL [Concomitant]
  4. ASPIRIN [Concomitant]
  5. DILTIAZEM [Concomitant]

REACTIONS (1)
  - Myoclonus [Recovered/Resolved]
